FAERS Safety Report 15236928 (Version 2)
Quarter: 2018Q3

REPORT INFORMATION
  Report Type: Spontaneous
  Country: US (occurrence: US)
  Receive Date: 20180803
  Receipt Date: 20180918
  Transmission Date: 20181010
  Serious: Yes (Other)
  Sender: FDA-Public Use
  Company Number: US-JNJFOC-20180737654

PATIENT
  Sex: Female

DRUGS (6)
  1. FLEXERIL [Interacting]
     Active Substance: CYCLOBENZAPRINE HYDROCHLORIDE
     Indication: SPINAL PAIN
     Route: 065
  2. TRAMADOL. [Concomitant]
     Active Substance: TRAMADOL
     Route: 065
  3. INVOKANA [Suspect]
     Active Substance: CANAGLIFLOZIN
     Indication: PRODUCT USED FOR UNKNOWN INDICATION
     Route: 065
     Dates: start: 2018, end: 2018
  4. INVOKANA [Suspect]
     Active Substance: CANAGLIFLOZIN
     Indication: PRODUCT USED FOR UNKNOWN INDICATION
     Route: 065
     Dates: start: 2018
  5. INVOKANA [Suspect]
     Active Substance: CANAGLIFLOZIN
     Indication: PRODUCT USED FOR UNKNOWN INDICATION
     Route: 065
     Dates: start: 2018, end: 2018
  6. TORADOL [Concomitant]
     Active Substance: KETOROLAC TROMETHAMINE
     Route: 065

REACTIONS (14)
  - Lethargy [Unknown]
  - Pain [Unknown]
  - Incorrect dose administered [Unknown]
  - Weight decreased [Unknown]
  - Loss of consciousness [Unknown]
  - Paraesthesia [Unknown]
  - Blood pressure abnormal [Unknown]
  - Product lot number issue [Unknown]
  - Asthenia [Unknown]
  - Off label use [Unknown]
  - Hypoaesthesia [Unknown]
  - Adverse event [Unknown]
  - Drug interaction [Unknown]
  - Hunger [Unknown]

NARRATIVE: CASE EVENT DATE: 2018
